FAERS Safety Report 9915547 (Version 2)
Quarter: 2014Q1

REPORT INFORMATION
  Report Type: Spontaneous
  Country: US (occurrence: US)
  Receive Date: 20140221
  Receipt Date: 20140312
  Transmission Date: 20141002
  Serious: Yes (Life-Threatening, Hospitalization, Other)
  Sender: FDA-Public Use
  Company Number: US-009507513-1402USA008806

PATIENT
  Age: 51 Year
  Sex: Male
  Weight: 85 kg

DRUGS (5)
  1. PRINIVIL [Suspect]
     Indication: HYPERTENSION
     Dosage: 10 MG, QD (2 5-MG TABLETS),(3.18MG/KG BODYWEIGHT) OVER A PERIOD OF 3 0R FEWER DAYS
     Route: 048
  2. PRINIVIL [Suspect]
     Dosage: 27 DF, OVER A  PERIOD OF THREE OR FEWER DAYS
     Route: 048
  3. HYDROCODONE BITARTRATE [Concomitant]
     Dosage: 5 MG, UNK
  4. ACETAMINOPHEN [Concomitant]
     Dosage: UNK
  5. ALPRAZOLAM [Concomitant]

REACTIONS (9)
  - Metabolic acidosis [Recovered/Resolved]
  - Confusional state [Recovered/Resolved]
  - Overdose [Recovered/Resolved]
  - Renal failure acute [Recovered/Resolved]
  - Hyperkalaemia [Recovered/Resolved]
  - Rhabdomyolysis [Recovered/Resolved]
  - Uraemic encephalopathy [Recovered/Resolved]
  - Azotaemia [Recovered/Resolved]
  - Haemodialysis [Recovered/Resolved]
